FAERS Safety Report 14194628 (Version 3)
Quarter: 2018Q4

REPORT INFORMATION
  Report Type: Spontaneous
  Country: IT (occurrence: IT)
  Receive Date: 20171116
  Receipt Date: 20181128
  Transmission Date: 20190204
  Serious: Yes (Other)
  Sender: FDA-Public Use
  Company Number: IT-ROCHE-2023795

PATIENT
  Age: 29 Year
  Sex: Female

DRUGS (9)
  1. HEPARIN [Suspect]
     Active Substance: HEPARIN SODIUM
     Route: 058
  2. HEPARIN [Suspect]
     Active Substance: HEPARIN SODIUM
     Route: 042
  3. ACTILYSE [Suspect]
     Active Substance: ALTEPLASE
     Dosage: OVER 5 HOURS/DAY, TWO COURSES
     Route: 042
  4. AT III [Concomitant]
     Route: 042
  5. AT III [Concomitant]
     Route: 042
  6. FRAXIPARINE [Concomitant]
     Active Substance: NADROPARIN CALCIUM
     Route: 065
  7. ACTILYSE [Suspect]
     Active Substance: ALTEPLASE
     Indication: BUDD-CHIARI SYNDROME
     Dosage: OVER 5 HOURS FOLLOWED BY A 2ND COURSE AFTER 48 HOURS
     Route: 042
  8. HEPARIN [Suspect]
     Active Substance: HEPARIN SODIUM
     Indication: BUDD-CHIARI SYNDROME
     Route: 042
  9. HEPARIN [Suspect]
     Active Substance: HEPARIN SODIUM
     Route: 058

REACTIONS (2)
  - Haematuria [Recovered/Resolved]
  - Maternal exposure during pregnancy [Unknown]
